FAERS Safety Report 4405174-4 (Version None)
Quarter: 2004Q3

REPORT INFORMATION
  Report Type: 
  Country: None (occurrence: None)
  Receive Date: 20040722
  Receipt Date: 20040722
  Transmission Date: 20050211
  Serious: Yes (Death)
  Sender: FDA-Public Use
  Company Number: None

PATIENT
  Age: 49 Year
  Sex: Male
  Weight: 86.1834 kg

DRUGS (2)
  1. METHADONE 125 MG [Suspect]
     Indication: DRUG WITHDRAWAL SYNDROME
     Dosage: 125 MG DAILY ORAL
     Route: 048
     Dates: start: 20000810, end: 20040510
  2. METHADONE 125 MG [Suspect]
     Indication: PAIN MANAGEMENT
     Dosage: 125 MG DAILY ORAL
     Route: 048
     Dates: start: 20000810, end: 20040510

REACTIONS (2)
  - COMPLETED SUICIDE [None]
  - DRUG WITHDRAWAL SYNDROME [None]
